FAERS Safety Report 16462511 (Version 1)
Quarter: 2019Q2

REPORT INFORMATION
  Report Type: Spontaneous
  Country: DE (occurrence: DE)
  Receive Date: 20190621
  Receipt Date: 20190621
  Transmission Date: 20190711
  Serious: Yes (Other)
  Sender: FDA-Public Use
  Company Number: DE-LEO PHARMA-319312

PATIENT
  Sex: Female

DRUGS (1)
  1. DAIVOBET [Suspect]
     Active Substance: BETAMETHASONE DIPROPIONATE\CALCIPOTRIENE
     Indication: PSORIASIS
     Dosage: 1 DOSAGE FORM = 50 MICROGRAMM/G CALCIPOTRIOL + 0,5 MG/G BETAMETHASONE?FOAM FOR APPLICATION TO THE SK
     Route: 003
     Dates: start: 20180303

REACTIONS (1)
  - Cataract [Unknown]
